FAERS Safety Report 12091648 (Version 1)
Quarter: 2016Q1

REPORT INFORMATION
  Report Type: Spontaneous
  Country: None (occurrence: CA)
  Receive Date: 20160218
  Receipt Date: 20160218
  Transmission Date: 20160526
  Serious: Yes (Hospitalization)
  Sender: FDA-Public Use
  Company Number: CA-AKRIMAX-IDR-2016-0040

PATIENT
  Age: 54 Year
  Sex: Female
  Weight: 70 kg

DRUGS (4)
  1. BIOCAL-D (CALCIUM, COLECALCIFEROL) TABLET [Concomitant]
     Indication: PRODUCT USED FOR UNKNOWN INDICATION
  2. SUBLINOX (ZOLPIDEM TARTRATE) TABLET [Concomitant]
     Indication: PRODUCT USED FOR UNKNOWN INDICATION
  3. MAXALT [Suspect]
     Active Substance: RIZATRIPTAN BENZOATE
     Indication: MIGRAINE
     Dosage: 10 MG, AS NEEDED
     Route: 048
  4. INDERAL LA [Suspect]
     Active Substance: PROPRANOLOL HYDROCHLORIDE
     Indication: MIGRAINE PROPHYLAXIS
     Dosage: 160 MG, 1X/DAY
     Route: 048

REACTIONS (5)
  - Abdominal pain [Unknown]
  - Anaemia [Unknown]
  - Colitis ischaemic [Unknown]
  - Rectal haemorrhage [Unknown]
  - Potentiating drug interaction [Unknown]
